FAERS Safety Report 9410085 (Version 1)
Quarter: 2013Q3

REPORT INFORMATION
  Report Type: Spontaneous
  Country: CA (occurrence: CA)
  Receive Date: 20130719
  Receipt Date: 20130719
  Transmission Date: 20140515
  Serious: Yes (Other)
  Sender: FDA-Public Use
  Company Number: CA-JNJFOC-20130706851

PATIENT
  Age: 35 Year
  Sex: Female

DRUGS (7)
  1. RISPERDAL [Suspect]
     Indication: PRODUCT USED FOR UNKNOWN INDICATION
     Route: 065
  2. LORAZEPAM [Concomitant]
     Route: 065
  3. CITALOPRAM [Concomitant]
     Route: 065
  4. DIVALPROEX [Concomitant]
     Route: 065
  5. OLANZAPINE [Concomitant]
     Route: 065
  6. TRAZODONE [Concomitant]
     Route: 065
  7. CARBAMAZEPINE [Concomitant]
     Route: 065

REACTIONS (3)
  - Cardiac arrest [Recovered/Resolved with Sequelae]
  - Brain injury [Recovered/Resolved with Sequelae]
  - Memory impairment [Not Recovered/Not Resolved]
